FAERS Safety Report 13021437 (Version 1)
Quarter: 2016Q4

REPORT INFORMATION
  Report Type: Spontaneous
  Country: ES (occurrence: ES)
  Receive Date: 20161213
  Receipt Date: 20161213
  Transmission Date: 20170207
  Serious: Yes (Other)
  Sender: FDA-Public Use
  Company Number: ES-AMGEN-ESPSP2016174545

PATIENT
  Age: 39 Year
  Sex: Female

DRUGS (2)
  1. PROCORALAN [Suspect]
     Active Substance: IVABRADINE
     Indication: SINUS TACHYCARDIA
     Dosage: 5 MG, BID
     Route: 048
     Dates: start: 201609, end: 201611
  2. PROCORALAN [Suspect]
     Active Substance: IVABRADINE
     Indication: OFF LABEL USE

REACTIONS (4)
  - Exposure during pregnancy [Recovered/Resolved]
  - Contraindicated product administered [Recovered/Resolved]
  - Abortion spontaneous [Recovered/Resolved]
  - First trimester pregnancy [Recovered/Resolved]

NARRATIVE: CASE EVENT DATE: 2016
